FAERS Safety Report 5718399-2 (Version None)
Quarter: 2008Q2

REPORT INFORMATION
  Report Type: 
  Country: None (occurrence: None)
  Receive Date: 20080425
  Receipt Date: 20080124
  Transmission Date: 20081010
  Serious: No
  Sender: FDA-Public Use
  Company Number: A0706690A

PATIENT

DRUGS (2)
  1. DEXTROAMPETAMINE SULFATE TAB [Suspect]
     Route: 048
  2. UNKNOWN [Concomitant]

REACTIONS (3)
  - DRUG INEFFECTIVE [None]
  - HEADACHE [None]
  - MOOD ALTERED [None]
